FAERS Safety Report 17436197 (Version 1)
Quarter: 2020Q1

REPORT INFORMATION
  Report Type: Spontaneous
  Country: CZ (occurrence: CZ)
  Receive Date: 20200219
  Receipt Date: 20200219
  Transmission Date: 20200409
  Serious: Yes (Hospitalization)
  Sender: FDA-Public Use
  Company Number: CZ-BRISTOL-MYERS SQUIBB COMPANY-BMS-2020-013270

PATIENT
  Age: 66 Year
  Sex: Male

DRUGS (8)
  1. ELIQUIS [Suspect]
     Active Substance: APIXABAN
     Indication: CEREBROVASCULAR ACCIDENT PROPHYLAXIS
     Dosage: UNK
     Route: 065
     Dates: start: 201904
  2. EMANERA [Interacting]
     Active Substance: ESOMEPRAZOLE MAGNESIUM
     Indication: PRODUCT USED FOR UNKNOWN INDICATION
     Dosage: IT IS TAKEN FOR 3 YEARS
     Route: 065
  3. KALIUM CHLORATUM [Interacting]
     Active Substance: POTASSIUM CHLORIDE
     Indication: PRODUCT USED FOR UNKNOWN INDICATION
     Dosage: UNK
     Route: 065
     Dates: start: 201910
  4. PURINOL [ALLOPURINOL] [Interacting]
     Active Substance: ALLOPURINOL
     Indication: PRODUCT USED FOR UNKNOWN INDICATION
     Dosage: UNK
     Route: 065
  5. BETASERC [Interacting]
     Active Substance: BETAHISTINE
     Indication: PRODUCT USED FOR UNKNOWN INDICATION
     Dosage: LONG TERM MEDICATION
     Route: 065
  6. FURORESE [FUROSEMIDE] [Interacting]
     Active Substance: FUROSEMIDE
     Indication: PRODUCT USED FOR UNKNOWN INDICATION
     Dosage: 125 MILLIGRAM
     Route: 065
     Dates: start: 201904
  7. ENTRESTO [Interacting]
     Active Substance: SACUBITRIL\VALSARTAN
     Indication: PRODUCT USED FOR UNKNOWN INDICATION
     Dosage: 24 MILLIGRAM
     Route: 065
  8. ATRAM [Interacting]
     Active Substance: CARVEDILOL
     Indication: PRODUCT USED FOR UNKNOWN INDICATION
     Dosage: 6.25 MILLIGRAM
     Route: 065

REACTIONS (3)
  - Pruritus [Not Recovered/Not Resolved]
  - Drug interaction [Unknown]
  - Rash [Not Recovered/Not Resolved]
